FAERS Safety Report 5163265-7 (Version None)
Quarter: 2006Q4

REPORT INFORMATION
  Report Type: 
  Country: None (occurrence: None)
  Receive Date: 20061124
  Receipt Date: 20061109
  Transmission Date: 20070319
  Serious: Yes (Death)
  Sender: FDA-Public Use
  Company Number: 2006138278

PATIENT
  Age: 49 Year

DRUGS (3)
  1. ALPRAZOLAM [Suspect]
  2. FENTANYL [Suspect]
  3. HYDROCODONE BITARTRATE + ACETAMINOPHEN [Suspect]

REACTIONS (5)
  - CARDIAC ARREST [None]
  - DRUG TOXICITY [None]
  - INCORRECT ROUTE OF DRUG ADMINISTRATION [None]
  - INTENTIONAL DRUG MISUSE [None]
  - RESPIRATORY ARREST [None]
